FAERS Safety Report 13658234 (Version 2)
Quarter: 2017Q2

REPORT INFORMATION
  Report Type: Spontaneous
  Country: IT (occurrence: IT)
  Receive Date: 20170616
  Receipt Date: 20170620
  Transmission Date: 20170830
  Serious: Yes (Life-Threatening)
  Sender: FDA-Public Use
  Company Number: IT-ROCHE-1951300

PATIENT
  Age: 69 Year
  Sex: Male
  Weight: 79 kg

DRUGS (2)
  1. FLEBOCORTID [Concomitant]
     Active Substance: HYDROCORTISONE SODIUM SUCCINATE
  2. RITUXIMAB [Suspect]
     Active Substance: RITUXIMAB
     Indication: NON-HODGKIN^S LYMPHOMA
     Route: 042
     Dates: start: 20170509, end: 20170509

REACTIONS (2)
  - Hypovolaemic shock [Recovered/Resolved]
  - Bradycardia [Recovered/Resolved]

NARRATIVE: CASE EVENT DATE: 20170509
